FAERS Safety Report 8315035-6 (Version None)
Quarter: 2012Q2

REPORT INFORMATION
  Report Type: 
  Country: None (occurrence: None)
  Receive Date: 20120426
  Receipt Date: 20120416
  Transmission Date: 20120825
  Serious: Yes (Other)
  Sender: FDA-Public Use
  Company Number: US-ELI_LILLY_AND_COMPANY-US201104006867

PATIENT
  Sex: Male

DRUGS (11)
  1. FORTEO [Suspect]
     Dosage: 20 UG, QOD
     Route: 065
  2. FORTEO [Suspect]
     Dosage: 20 UG, QD
     Route: 065
  3. FORTEO [Suspect]
     Indication: OSTEOPOROSIS
     Dosage: 20 UG, QD
     Route: 065
  4. FORTEO [Suspect]
     Dosage: 20 UG, QD
     Route: 065
  5. FORTEO [Suspect]
     Dosage: 20 UG, QD
     Route: 065
  6. FORTEO [Suspect]
     Dosage: 20 UG, QD
     Route: 065
  7. FORTEO [Suspect]
     Dosage: 20 UG, QOD
  8. FORTEO [Suspect]
     Dosage: 20 UG, QOD
  9. ANTIBIOTICS [Concomitant]
  10. PROTONIX [Concomitant]
     Indication: EROSIVE OESOPHAGITIS
  11. SUCRALFATE [Concomitant]
     Indication: EROSIVE OESOPHAGITIS

REACTIONS (22)
  - INTERVERTEBRAL DISC PROTRUSION [None]
  - HAEMORRHOIDS [None]
  - MUSCULAR WEAKNESS [None]
  - BLOOD CALCIUM INCREASED [None]
  - PROSTATIC OPERATION [None]
  - PAIN IN EXTREMITY [None]
  - STRESS [None]
  - INTENTIONAL DRUG MISUSE [None]
  - PROCEDURAL PAIN [None]
  - BLOOD URINE PRESENT [None]
  - CONSTIPATION [None]
  - MEMORY IMPAIRMENT [None]
  - BIOPSY PROSTATE [None]
  - BACK DISORDER [None]
  - FAECES HARD [None]
  - RECTAL HAEMORRHAGE [None]
  - BACK PAIN [None]
  - ABDOMINAL PAIN UPPER [None]
  - HAEMATOCHEZIA [None]
  - EROSIVE OESOPHAGITIS [None]
  - DYSPEPSIA [None]
  - DRUG PRESCRIBING ERROR [None]
